FAERS Safety Report 19029752 (Version 1)
Quarter: 2021Q1

REPORT INFORMATION
  Report Type: Spontaneous
  Country: US (occurrence: US)
  Receive Date: 20210318
  Receipt Date: 20210318
  Transmission Date: 20210420
  Serious: Yes (Hospitalization)
  Sender: FDA-Public Use
  Company Number: None

PATIENT
  Age: 71 Year
  Sex: Male
  Weight: 103 kg

DRUGS (2)
  1. DOXYCYCLINE (DOXYCYCLINE HYCLATE 100MG CAP) [Suspect]
     Active Substance: DOXYCYCLINE HYCLATE
     Indication: PAIN
     Dates: start: 20210216, end: 20210221
  2. CEPHALEXIN (CEPHALEXIN 500MG CAP) [Suspect]
     Active Substance: CEPHALEXIN
     Indication: PAIN
     Dates: start: 20210216, end: 20210221

REACTIONS (3)
  - Throat tightness [None]
  - Drug hypersensitivity [None]
  - Anaphylactic reaction [None]

NARRATIVE: CASE EVENT DATE: 20210221
